FAERS Safety Report 6803474-1 (Version None)
Quarter: 2010Q2

REPORT INFORMATION
  Report Type: 
  Country: None (occurrence: None)
  Receive Date: 20100628
  Receipt Date: 20100618
  Transmission Date: 20101027
  Serious: Yes (Hospitalization)
  Sender: FDA-Public Use
  Company Number: GXKR2010IL06769

PATIENT
  Age: 16 Year
  Sex: Female

DRUGS (2)
  1. SIMVASTATIN [Suspect]
     Dosage: 200 MG, ONCE/SINGLE
     Route: 065
  2. METFORMIN HCL [Suspect]
     Dosage: 22 G, ONCE/SINGLE
     Route: 065

REACTIONS (5)
  - DIABETES INSIPIDUS [None]
  - OVERDOSE [None]
  - PANCREATITIS [None]
  - RENAL IMPAIRMENT [None]
  - VOMITING [None]
